FAERS Safety Report 7475855-7 (Version None)
Quarter: 2011Q2

REPORT INFORMATION
  Report Type: 
  Country: None (occurrence: None)
  Receive Date: 20110512
  Receipt Date: 20110505
  Transmission Date: 20111010
  Serious: Yes (Death)
  Sender: FDA-Public Use
  Company Number: PHHY2011US39156

PATIENT
  Age: 6 Year

DRUGS (1)
  1. IMIPRAMINE [Suspect]
     Dosage: UNK UKN, UNK

REACTIONS (1)
  - TOXICITY TO VARIOUS AGENTS [None]
